FAERS Safety Report 7152404-4 (Version None)
Quarter: 2010Q4

REPORT INFORMATION
  Report Type: 
  Country: None (occurrence: None)
  Receive Date: 20101213
  Receipt Date: 20101129
  Transmission Date: 20110411
  Serious: Yes (Other)
  Sender: FDA-Public Use
  Company Number: US-RANBAXY-2010RR-40124

PATIENT
  Sex: Male

DRUGS (4)
  1. CIPROFLOXACIN [Suspect]
     Indication: URINARY TRACT INFECTION
  2. LEVAQUIN [Suspect]
     Indication: URINARY TRACT INFECTION
     Dosage: UNK MG, QD
     Route: 048
     Dates: start: 20080701
  3. LEVAQUIN [Suspect]
     Dosage: 500 MG, QD
     Route: 048
     Dates: start: 20050324, end: 20050402
  4. LEVAQUIN [Suspect]
     Dosage: 500 MG, QD
     Dates: start: 20080731, end: 20080806

REACTIONS (3)
  - HAEMATOMA [None]
  - TENDON RUPTURE [None]
  - TENDONITIS [None]
